FAERS Safety Report 6385449-2 (Version None)
Quarter: 2009Q4

REPORT INFORMATION
  Report Type: 
  Country: None (occurrence: None)
  Receive Date: 20091002
  Receipt Date: 20080825
  Transmission Date: 20100525
  Serious: No
  Sender: FDA-Public Use
  Company Number: US-ASTRAZENECA-2008UW17439

PATIENT
  Sex: Female

DRUGS (2)
  1. ARIMIDEX [Suspect]
     Route: 048
     Dates: start: 20050101
  2. NEXIUM [Concomitant]
     Route: 048

REACTIONS (4)
  - LIBIDO DECREASED [None]
  - LIMB DISCOMFORT [None]
  - SEXUAL DYSFUNCTION [None]
  - TRIGGER FINGER [None]
